FAERS Safety Report 8090377-0 (Version None)
Quarter: 2012Q1

REPORT INFORMATION
  Report Type: 
  Country: None (occurrence: None)
  Receive Date: 20120129
  Receipt Date: 20111201
  Transmission Date: 20120608
  Serious: No
  Sender: FDA-Public Use
  Company Number: US-ABBOTT-11P-163-0879593-00

PATIENT

DRUGS (1)
  1. HUMIRA [Suspect]
     Indication: PRODUCT USED FOR UNKNOWN INDICATION

REACTIONS (6)
  - FUNGAL INFECTION [None]
  - CANDIDIASIS [None]
  - COUGH [None]
  - SINUSITIS [None]
  - SENSATION OF HEAVINESS [None]
  - BRONCHITIS [None]
